FAERS Safety Report 10746297 (Version 4)
Quarter: 2015Q2

REPORT INFORMATION
  Report Type: Spontaneous
  Country: US (occurrence: US)
  Receive Date: 20150128
  Receipt Date: 20150512
  Transmission Date: 20150821
  Serious: No
  Sender: FDA-Public Use
  Company Number: US-009507513-1110USA03593

PATIENT
  Sex: Male
  Weight: 63.49 kg

DRUGS (2)
  1. PROPECIA [Suspect]
     Active Substance: FINASTERIDE
     Dosage: 1 MG QD
     Route: 048
     Dates: start: 200707, end: 20070820
  2. PROPECIA [Suspect]
     Active Substance: FINASTERIDE
     Indication: ALOPECIA
     Dosage: 1MG QD
     Route: 048
     Dates: start: 200501, end: 200507

REACTIONS (28)
  - Adrenal disorder [Unknown]
  - Initial insomnia [Unknown]
  - Blood cortisol increased [Unknown]
  - Erectile dysfunction [Not Recovered/Not Resolved]
  - Sexual dysfunction [Unknown]
  - Cognitive disorder [Unknown]
  - Pain [Unknown]
  - Melanocytic naevus [Unknown]
  - Back injury [Unknown]
  - Hypogonadism [Unknown]
  - Urine cortisol/creatinine ratio increased [Unknown]
  - Ejaculation disorder [Unknown]
  - Ejaculation failure [Unknown]
  - Asthenia [Unknown]
  - Arthralgia [Unknown]
  - Fatigue [Unknown]
  - Sexual dysfunction [Not Recovered/Not Resolved]
  - Type 1 diabetes mellitus [Unknown]
  - Lipids decreased [Unknown]
  - Dehydroepiandrosterone increased [Unknown]
  - Loss of libido [Not Recovered/Not Resolved]
  - Depression [Not Recovered/Not Resolved]
  - Myalgia [Unknown]
  - Anxiety [Unknown]
  - Nodule [Unknown]
  - Back pain [Unknown]
  - Neck pain [Unknown]
  - Blood testosterone free decreased [Not Recovered/Not Resolved]

NARRATIVE: CASE EVENT DATE: 2005
